FAERS Safety Report 19370200 (Version 2)
Quarter: 2023Q1

REPORT INFORMATION
  Report Type: Spontaneous
  Country: US (occurrence: None)
  Receive Date: 20210604
  Receipt Date: 20230117
  Transmission Date: 20230418
  Serious: No
  Sender: FDA-Public Use
  Company Number: 2021A485030

PATIENT
  Sex: Female

DRUGS (5)
  1. DALIRESP [Suspect]
     Active Substance: ROFLUMILAST
     Indication: Chronic obstructive pulmonary disease
     Route: 048
  2. TRELEGY ELLIPTA [Concomitant]
     Active Substance: FLUTICASONE FUROATE\UMECLIDINIUM BROMIDE\VILANTEROL TRIFENATATE
     Indication: Chronic obstructive pulmonary disease
  3. AMLODIPINE [Concomitant]
     Active Substance: AMLODIPINE BESYLATE
  4. ASPIRIN [Concomitant]
     Active Substance: ASPIRIN
     Indication: Chronic obstructive pulmonary disease
  5. OCCUVITE [Concomitant]
     Indication: Macular degeneration

REACTIONS (7)
  - Arthritis [Unknown]
  - Movement disorder [Unknown]
  - Body height decreased [Unknown]
  - Finger deformity [Unknown]
  - Visual impairment [Unknown]
  - Blood pressure abnormal [Unknown]
  - Product packaging issue [Unknown]
